FAERS Safety Report 23014639 (Version 1)
Quarter: 2023Q4

REPORT INFORMATION
  Report Type: Report from Study
  Country: NL (occurrence: NL)
  Receive Date: 20231002
  Receipt Date: 20231002
  Transmission Date: 20240110
  Serious: Yes (Other)
  Sender: FDA-Public Use
  Company Number: NL-002147023-NVSC2023NL208978

PATIENT
  Age: 47 Year
  Sex: Female

DRUGS (1)
  1. RIBOCICLIB [Suspect]
     Active Substance: RIBOCICLIB
     Indication: Breast cancer metastatic
     Dosage: 200 MG
     Route: 065
     Dates: start: 20200310, end: 20210121

REACTIONS (1)
  - Vasoconstriction [Recovered/Resolved with Sequelae]

NARRATIVE: CASE EVENT DATE: 20210101
